FAERS Safety Report 11890825 (Version 5)
Quarter: 2016Q1

REPORT INFORMATION
  Report Type: Spontaneous
  Country: BR (occurrence: BR)
  Receive Date: 20160106
  Receipt Date: 20160325
  Transmission Date: 20160526
  Serious: Yes (Other)
  Sender: FDA-Public Use
  Company Number: BR-AMGEN-BRASP2015141010

PATIENT
  Age: 67 Year
  Sex: Female
  Weight: 78 kg

DRUGS (28)
  1. METHOTREXATE [Concomitant]
     Active Substance: METHOTREXATE
     Dosage: 1 TABLET EVERY TUESDAY
     Dates: start: 201601
  2. DONAREN [Concomitant]
     Active Substance: TRAZODONE HYDROCHLORIDE
     Dosage: ONE TABLET (100 MG), UNSPECIFIED FREQUENCY
  3. TRAMADOL. [Concomitant]
     Active Substance: TRAMADOL
     Dosage: 50 MG, UNK
  4. FOLIN                              /00024201/ [Concomitant]
     Active Substance: FOLIC ACID
     Dosage: 30 MG, UNK
     Dates: start: 2013
  5. ULTRACET [Concomitant]
     Active Substance: ACETAMINOPHEN\TRAMADOL HYDROCHLORIDE
     Dosage: 0.6 MG, UNK
  6. SIMVASTATIN. [Concomitant]
     Active Substance: SIMVASTATIN
     Dosage: 20 MG, UNK
     Dates: start: 2013
  7. OSCAL D [Concomitant]
     Active Substance: CALCIUM CARBONATE\CHOLECALCIFEROL
     Dosage: 1 TABLET (UNSPECIFIED DOSE), UNSPECIFIED FREQUENCY
     Dates: start: 2014
  8. VITAMIN C [Concomitant]
     Active Substance: ASCORBIC ACID
     Dosage: UNK
  9. VITAMIN C [Concomitant]
     Active Substance: ASCORBIC ACID
     Dosage: UNK
  10. CITALOPRAM [Concomitant]
     Active Substance: CITALOPRAM HYDROBROMIDE
     Dosage: 20 MG, UNK
     Dates: start: 2013
  11. CLOPIDOGREL BISULFATE. [Concomitant]
     Active Substance: CLOPIDOGREL BISULFATE
     Dosage: 75 MG, UNK
     Dates: start: 2013
  12. DORFLEX [Concomitant]
     Active Substance: CAFFEINE\DIPYRONE\ORPHENADRINE
     Indication: HEADACHE
     Dosage: UNK
  13. DORAN [Concomitant]
     Dosage: 75 MG, 3X/DAY (AFTER BREAKFAST, LUNCH AND DINNER)
  14. DEFLAZACORT [Concomitant]
     Active Substance: DEFLAZACORT
     Dosage: 6 MG, UNK
     Dates: start: 2014
  15. FOLIN                              /00024201/ [Concomitant]
     Active Substance: FOLIC ACID
     Dosage: 30 MG, UNK
  16. ENBREL [Suspect]
     Active Substance: ETANERCEPT
     Indication: PSORIATIC ARTHROPATHY
     Dosage: 50 MG, ONCE WEEKLY (EVERY TUESDAY)
     Route: 058
     Dates: start: 20151215
  17. DIOVAN [Concomitant]
     Active Substance: VALSARTAN
     Indication: BLOOD PRESSURE MEASUREMENT
     Dosage: 160 MG, UNK
     Dates: start: 2013
  18. MODURETIC 5-50 [Concomitant]
     Active Substance: AMILORIDE HYDROCHLORIDE\HYDROCHLOROTHIAZIDE
     Dosage: 50 MG, UNK
     Dates: start: 2013
  19. METHOTREXATE [Concomitant]
     Active Substance: METHOTREXATE
     Dosage: 4 TABLETS OF 2.5MG (10 MG), 2X/DAY (IN THER MORNING AND AT NIGHT)
  20. COMBIRON [Concomitant]
     Active Substance: ASCORBIC ACID\FERROUS SULFATE\FOLIC ACID\PYRIDOXINE HYDROCHLORIDE\RIBOFLAVIN\THIAMINE MONONITRATE
     Dosage: UNK
     Dates: start: 201601
  21. RESTIVA [Concomitant]
     Active Substance: BUPRENORPHINE
     Dosage: 0.5 MG, UNK
  22. TECNOMET                           /00113801/ [Concomitant]
     Active Substance: METHOTREXATE
     Dosage: 2.5 MG, UNK
  23. EUTIROX [Concomitant]
     Active Substance: LEVOTHYROXINE SODIUM
     Dosage: 125 MG, UNK
  24. METHOTREXATE [Concomitant]
     Active Substance: METHOTREXATE
     Dosage: 4 TABLETS OF 2.5 MG (10 MG), 2X/DAY (IN THER MORNING AND AT NIGHT)
  25. TECNOMET                           /00113801/ [Concomitant]
     Active Substance: METHOTREXATE
     Dosage: 2.5 MG, UNK
     Dates: start: 2014
  26. ENBREL [Suspect]
     Active Substance: ETANERCEPT
     Dosage: 50 MG, ONCE WEEKLY
     Route: 058
     Dates: start: 201512, end: 201601
  27. RIVOTRIL [Concomitant]
     Active Substance: CLONAZEPAM
     Dosage: 2 MG, UNK
     Dates: start: 2013
  28. LONIUM [Concomitant]
     Dosage: BEFORE THE LUNCH
     Dates: start: 2015

REACTIONS (19)
  - Arthralgia [Not Recovered/Not Resolved]
  - Abnormal faeces [Recovered/Resolved]
  - Mouth haemorrhage [Recovered/Resolved]
  - Infection [Recovered/Resolved]
  - Gastric haemorrhage [Unknown]
  - Weight decreased [Recovered/Resolved]
  - Tongue movement disturbance [Recovered/Resolved]
  - Aphthous ulcer [Recovered/Resolved]
  - Speech disorder [Unknown]
  - Oropharyngeal pain [Recovered/Resolved]
  - Blood blister [Recovered/Resolved]
  - Abdominal pain [Recovered/Resolved]
  - Eating disorder [Recovered/Resolved]
  - Purulent discharge [Recovered/Resolved]
  - Gait disturbance [Not Recovered/Not Resolved]
  - Lip disorder [Recovered/Resolved]
  - Haematochezia [Recovered/Resolved]
  - Muscular weakness [Not Recovered/Not Resolved]
  - Mobility decreased [Not Recovered/Not Resolved]

NARRATIVE: CASE EVENT DATE: 201601
